FAERS Safety Report 6989495-7 (Version None)
Quarter: 2010Q3

REPORT INFORMATION
  Report Type: 
  Country: None (occurrence: None)
  Receive Date: 20100916
  Receipt Date: 20091210
  Transmission Date: 20110219
  Serious: Yes (Other)
  Sender: FDA-Public Use
  Company Number: IT-PFIZER INC-2009288758

PATIENT
  Age: 42 Year
  Sex: Female

DRUGS (2)
  1. LYRICA [Suspect]
     Indication: PAIN
     Dosage: UNK
  2. SERTRALINE [Concomitant]

REACTIONS (2)
  - HAEMATOCHEZIA [None]
  - SWELLING FACE [None]
